FAERS Safety Report 10516958 (Version 1)
Quarter: 2014Q4

REPORT INFORMATION
  Report Type: Spontaneous
  Country: US (occurrence: None)
  Receive Date: 20141003
  Receipt Date: 20141003
  Transmission Date: 20150528
  Serious: Yes (Other)
  Sender: FDA-Public Use
  Company Number: 2013-16429

PATIENT
  Age: 85 Year
  Sex: Male

DRUGS (4)
  1. ALENDRONATE SODIUM (WATSON LABORATORIES) (ALENDRONATE SODIUM), UNK UNKUNK [Suspect]
     Active Substance: ALENDRONATE SODIUM
     Indication: OSTEOPOROSIS PROPHYLAXIS
     Dosage: AS PRESCRIBED AND IN A FORESEEABLE MANNER, ORAL
     Route: 048
     Dates: start: 2009, end: 2011
  2. ALENDRONATE SODIUM (WATSON LABORATORIES) (ALENDRONATE SODIUM), UNK UNKUNK [Suspect]
     Active Substance: ALENDRONATE SODIUM
     Indication: OSTEOPOROSIS
     Dosage: AS PRESCRIBED AND IN A FORESEEABLE MANNER, ORAL
     Route: 048
     Dates: start: 2009, end: 2011
  3. FOSAMAX [Suspect]
     Active Substance: ALENDRONATE SODIUM
     Indication: OSTEOPOROSIS
     Dosage: AS PRESCRIBED AND IN  A FORESEEABLE MANNER, ORAL
     Route: 048
     Dates: start: 2005, end: 2009
  4. FOSAMAX [Suspect]
     Active Substance: ALENDRONATE SODIUM
     Indication: OSTEOPOROSIS PROPHYLAXIS
     Dosage: AS PRESCRIBED AND IN  A FORESEEABLE MANNER, ORAL
     Route: 048
     Dates: start: 2005, end: 2009

REACTIONS (2)
  - Atypical femur fracture [None]
  - Incorrect drug administration duration [None]
